FAERS Safety Report 26074646 (Version 1)
Quarter: 2025Q4

REPORT INFORMATION
  Report Type: Spontaneous
  Country: US (occurrence: None)
  Receive Date: 20251120
  Receipt Date: 20251120
  Transmission Date: 20260117
  Serious: Yes (Disabling)
  Sender: FDA-CTU
  Company Number: None

PATIENT
  Age: 86 Year
  Sex: Female
  Weight: 45.36 kg

DRUGS (15)
  1. DESVENLAFAXINE SUCCINATE [Suspect]
     Active Substance: DESVENLAFAXINE SUCCINATE
     Indication: Depression
     Dosage: OTHER QUANTITY : 1 PILL FOR 3 DAYS ;?
     Dates: start: 20230804, end: 20230806
  2. UBIQUINOL [Concomitant]
     Active Substance: UBIQUINOL
  3. Co Q10 100mg [Concomitant]
  4. B Stress [Concomitant]
  5. Cal maq + D [Concomitant]
  6. BROMELAINS [Concomitant]
     Active Substance: BROMELAINS
  7. Preser-Vision [Concomitant]
  8. Alphe Lipoic Sustain [Concomitant]
  9. DOFETILIDE [Concomitant]
     Active Substance: DOFETILIDE
  10. ELIQUIS [Concomitant]
     Active Substance: APIXABAN
  11. ATORVASTATIN [Concomitant]
     Active Substance: ATORVASTATIN
  12. Levothroxine 25 mg [Concomitant]
  13. Fluorometholone - Eye Drop [Concomitant]
  14. Compound Formula for Trigeminol [Concomitant]
  15. dicycygablorpret/dmso/men [Concomitant]

REACTIONS (7)
  - Vision blurred [None]
  - Hypoaesthesia [None]
  - Facial pain [None]
  - Eye pain [None]
  - Pain in extremity [None]
  - Electric shock sensation [None]
  - Trigeminal neuralgia [None]

NARRATIVE: CASE EVENT DATE: 20250806
